FAERS Safety Report 11486888 (Version 9)
Quarter: 2018Q4

REPORT INFORMATION
  Report Type: Spontaneous
  Country: US (occurrence: US)
  Receive Date: 20150910
  Receipt Date: 20181227
  Transmission Date: 20190204
  Serious: No
  Sender: FDA-Public Use
  Company Number: US-PFIZER INC-2015291472

PATIENT
  Age: 55 Year
  Sex: Male
  Weight: 79.37 kg

DRUGS (3)
  1. LYRICA [Suspect]
     Active Substance: PREGABALIN
     Indication: NEURALGIA
     Dosage: 150 MG, 4X/DAY
     Route: 048
  2. LYRICA [Suspect]
     Active Substance: PREGABALIN
     Dosage: 120 MG, 4X/DAY
  3. LYRICA [Suspect]
     Active Substance: PREGABALIN
     Indication: NERVE INJURY
     Dosage: 150 MG, 3X/DAY
     Dates: start: 2005

REACTIONS (4)
  - Muscle spasms [Unknown]
  - Hypoacusis [Not Recovered/Not Resolved]
  - Product use issue [Unknown]
  - Pain [Unknown]
